FAERS Safety Report 16833846 (Version 1)
Quarter: 2019Q3

REPORT INFORMATION
  Report Type: Spontaneous
  Country: US (occurrence: US)
  Receive Date: 20190920
  Receipt Date: 20190920
  Transmission Date: 20191005
  Serious: No
  Sender: FDA-Public Use
  Company Number: US-MAYNE PHARMA-2018MYN001561

PATIENT

DRUGS (1)
  1. FENTANYL. [Suspect]
     Active Substance: FENTANYL
     Indication: PAIN
     Dosage: 1 PATCH EVERY 3 DAYS AS DIRECTED
     Route: 062
     Dates: start: 201809

REACTIONS (4)
  - Pain [Unknown]
  - Therapeutic response shortened [Unknown]
  - Product adhesion issue [Unknown]
  - Application site pruritus [Unknown]

NARRATIVE: CASE EVENT DATE: 2018
